FAERS Safety Report 24835015 (Version 3)
Quarter: 2025Q1

REPORT INFORMATION
  Report Type: Spontaneous
  Country: US (occurrence: US)
  Receive Date: 20250113
  Receipt Date: 20250131
  Transmission Date: 20250408
  Serious: No
  Sender: APOTEX
  Company Number: US-APOTEX-2024AP020336

PATIENT
  Age: 86 Year
  Sex: Female

DRUGS (1)
  1. AZELASTINE HYDROCHLORIDE [Suspect]
     Active Substance: AZELASTINE HYDROCHLORIDE
     Indication: Product used for unknown indication
     Dosage: 2 GTT DROPS, BID
     Route: 047

REACTIONS (2)
  - Wrong technique in product usage process [Unknown]
  - Product use complaint [Unknown]
